FAERS Safety Report 9576366 (Version 2)
Quarter: 2013Q4

REPORT INFORMATION
  Report Type: Spontaneous
  Country: US (occurrence: US)
  Receive Date: 20131001
  Receipt Date: 20131001
  Transmission Date: 20140711
  Serious: Yes (Other)
  Sender: FDA-Public Use
  Company Number: US-RB-046530-12

PATIENT
  Age: 56 Year
  Sex: Male

DRUGS (4)
  1. SUBOXONE TABLETS [Suspect]
     Route: 060
  2. SUBOXONE TABLETS [Suspect]
     Indication: DRUG DEPENDENCE
     Dosage: TAPER TO 14 MG DAILY
     Route: 060
     Dates: end: 2010
  3. SUBUTEX [Suspect]
     Indication: DRUG DEPENDENCE
     Route: 060
  4. SUBOXONE FILM [Suspect]
     Indication: DRUG DEPENDENCE
     Dosage: SUBOXONE FILM
     Route: 060
     Dates: start: 2010, end: 2013

REACTIONS (4)
  - Tachyphrenia [Recovered/Resolved]
  - Drug withdrawal syndrome [Not Recovered/Not Resolved]
  - Intentional drug misuse [Recovered/Resolved]
  - Convulsion [Recovered/Resolved]
